FAERS Safety Report 6655916-2 (Version None)
Quarter: 2010Q1

REPORT INFORMATION
  Report Type: 
  Country: None (occurrence: None)
  Receive Date: 20100329
  Receipt Date: 20100323
  Transmission Date: 20100710
  Serious: Yes (Other)
  Sender: FDA-Public Use
  Company Number: US-ROCHE-693590

PATIENT
  Sex: Female

DRUGS (2)
  1. HERCEPTIN [Suspect]
     Indication: BREAST CANCER
     Dosage: HELD, RECEIVED 11 OF 18 SCHEDULED DOSES.
     Route: 042
  2. HERCEPTIN [Suspect]
     Dosage: RESTARTED: LAST DOSE ON 03 MARCH 2010
     Route: 042
     Dates: start: 20091115

REACTIONS (2)
  - EJECTION FRACTION DECREASED [None]
  - THROMBOSIS [None]
